FAERS Safety Report 26193317 (Version 1)
Quarter: 2025Q4

REPORT INFORMATION
  Report Type: Spontaneous
  Country: US (occurrence: None)
  Receive Date: 20251223
  Receipt Date: 20251223
  Transmission Date: 20260117
  Serious: No
  Sender: FDA-CTU
  Company Number: None

PATIENT
  Age: 82 Year
  Sex: Male
  Weight: 99 kg

DRUGS (24)
  1. CREON [Suspect]
     Active Substance: PANCRELIPASE AMYLASE\PANCRELIPASE LIPASE\PANCRELIPASE PROTEASE
     Indication: Pancreatic enzymes decreased
     Dosage: 1 CAPSULE(S) TWICE A DAY ORAL
     Route: 048
  2. NORVASC [Concomitant]
     Active Substance: AMLODIPINE BESYLATE
  3. AMLODIPINE [Concomitant]
     Active Substance: AMLODIPINE BESYLATE
  4. BENAZEPRIL [Concomitant]
     Active Substance: BENAZEPRIL HYDROCHLORIDE
  5. CHLORTHALIDONE [Concomitant]
     Active Substance: CHLORTHALIDONE
  6. clonaepam [Concomitant]
  7. ALLEGRA [Concomitant]
     Active Substance: FEXOFENADINE HYDROCHLORIDE
  8. FLONASE [Concomitant]
     Active Substance: FLUTICASONE PROPIONATE
  9. NEBIVOLOL [Concomitant]
     Active Substance: NEBIVOLOL
  10. PANTOPRAZOLE [Concomitant]
     Active Substance: PANTOPRAZOLE
  11. FLOMAX [Concomitant]
     Active Substance: TAMSULOSIN HYDROCHLORIDE
  12. ACETAMINOPHEN [Concomitant]
     Active Substance: ACETAMINOPHEN
  13. VITAMIN B COMPLEX [Concomitant]
     Active Substance: CYANOCOBALAMIN\DEXPANTHENOL\NIACINAMIDE\PYRIDOXINE HYDROCHLORIDE\RIBOFLAVIN 5^-PHOSPHATE SODIUM\THIA
  14. CALCIUM [Concomitant]
     Active Substance: CALCIUM
  15. MAGNESIUM [Concomitant]
     Active Substance: MAGNESIUM
  16. ZINC [Concomitant]
     Active Substance: ZINC
  17. COENZYME Q10 [Concomitant]
     Active Substance: DIETARY SUPPLEMENT\UBIDECARENONE
  18. B12 [Concomitant]
  19. VOLTAREN [Concomitant]
     Active Substance: DICLOFENAC SODIUM
  20. METAMUCIL [Concomitant]
     Active Substance: PLANTAGO SEED
  21. POTASSIUM CITRATE [Concomitant]
  22. VITAMIN C [Concomitant]
     Active Substance: ASCORBIC ACID
  23. VITAMIN D3 [Concomitant]
     Active Substance: CHOLECALCIFEROL
  24. VITAMINS [Concomitant]
     Active Substance: VITAMINS

REACTIONS (2)
  - Rash [None]
  - Urticaria [None]

NARRATIVE: CASE EVENT DATE: 20251223
